FAERS Safety Report 6849411-5 (Version None)
Quarter: 2010Q3

REPORT INFORMATION
  Report Type: 
  Country: None (occurrence: None)
  Receive Date: 20100716
  Receipt Date: 20070928
  Transmission Date: 20110219
  Serious: No
  Sender: FDA-Public Use
  Company Number: US-PFIZER INC-2007082653

PATIENT
  Sex: Female
  Weight: 28.2 kg

DRUGS (1)
  1. CHANTIX [Suspect]
     Indication: SMOKING CESSATION THERAPY
     Route: 048
     Dates: start: 20070913

REACTIONS (11)
  - ABNORMAL DREAMS [None]
  - AGITATION [None]
  - CARDIAC FLUTTER [None]
  - CHEST DISCOMFORT [None]
  - DISTURBANCE IN ATTENTION [None]
  - DYSPNOEA [None]
  - FEELING ABNORMAL [None]
  - HOT FLUSH [None]
  - NERVOUSNESS [None]
  - SLEEP DISORDER [None]
  - STRESS [None]
